FAERS Safety Report 14930743 (Version 1)
Quarter: 2018Q2

REPORT INFORMATION
  Report Type: Report from Study
  Country: CA (occurrence: CA)
  Receive Date: 20180523
  Receipt Date: 20180523
  Transmission Date: 20180711
  Serious: Yes (Other)
  Sender: FDA-Public Use
  Company Number: PHHY2014CA035654

PATIENT
  Sex: Female

DRUGS (5)
  1. ACLASTA [Suspect]
     Active Substance: ZOLEDRONIC ACID
     Indication: OSTEOPOROSIS
     Dosage: UNK
     Route: 042
     Dates: start: 20140318
  2. ACLASTA [Suspect]
     Active Substance: ZOLEDRONIC ACID
     Dosage: UNK
     Route: 042
     Dates: start: 20150331
  3. ACLASTA [Suspect]
     Active Substance: ZOLEDRONIC ACID
     Dosage: UNK
     Route: 042
     Dates: start: 20170425
  4. ACLASTA [Suspect]
     Active Substance: ZOLEDRONIC ACID
     Dosage: UNK
     Route: 042
     Dates: start: 20180516
  5. ACLASTA [Suspect]
     Active Substance: ZOLEDRONIC ACID
     Dosage: UNK
     Route: 042
     Dates: start: 20160311

REACTIONS (5)
  - Dyspnoea [Unknown]
  - Pain in extremity [Unknown]
  - Gait disturbance [Unknown]
  - Back pain [Unknown]
  - Rheumatoid arthritis [Unknown]
